FAERS Safety Report 10184071 (Version 2)
Quarter: 2014Q2

REPORT INFORMATION
  Report Type: Spontaneous
  Country: US (occurrence: US)
  Receive Date: 20140520
  Receipt Date: 20140520
  Transmission Date: 20141212
  Serious: No
  Sender: FDA-Public Use
  Company Number: US-ASTRAZENECA-2013SE92921

PATIENT
  Age: 71 Year
  Sex: Female
  Weight: 81.6 kg

DRUGS (3)
  1. ENTOCORT EC [Suspect]
     Indication: COLITIS
     Route: 048
     Dates: start: 20131202, end: 20131223
  2. ENTOCORT EC [Suspect]
     Indication: GASTRITIS
     Route: 048
     Dates: start: 20131202, end: 20131223
  3. LEVOTHYROXINE [Concomitant]
     Indication: THYROID DISORDER
     Route: 048

REACTIONS (3)
  - Headache [Not Recovered/Not Resolved]
  - Off label use [Unknown]
  - Intentional product misuse [Unknown]
